FAERS Safety Report 5789471-6 (Version None)
Quarter: 2008Q2

REPORT INFORMATION
  Report Type: 
  Country: None (occurrence: None)
  Receive Date: 20080623
  Receipt Date: 20080612
  Transmission Date: 20081010
  Serious: Yes (Life-Threatening, Hospitalization)
  Sender: FDA-Public Use
  Company Number: 2008MP000102

PATIENT
  Age: 48 Year
  Sex: Male

DRUGS (1)
  1. GLIADEL [Suspect]
     Indication: GLIOBLASTOMA
     Dosage: X1;ICER
     Dates: start: 20080101

REACTIONS (2)
  - BRADYCARDIA [None]
  - HYPOXIA [None]
